FAERS Safety Report 18554721 (Version 1)
Quarter: 2020Q4

REPORT INFORMATION
  Report Type: Spontaneous
  Country: US (occurrence: US)
  Receive Date: 20201127
  Receipt Date: 20201127
  Transmission Date: 20210114
  Serious: Yes (Other)
  Sender: FDA-Public Use
  Company Number: US-009507513-2011USA012589

PATIENT
  Age: 69 Year
  Sex: Male

DRUGS (10)
  1. FLOMAX [Suspect]
     Active Substance: TAMSULOSIN HYDROCHLORIDE
     Dosage: 1 DF, QD
  2. KEYTRUDA [Suspect]
     Active Substance: PEMBROLIZUMAB
     Dosage: 200 MG, 1X
  3. DIPHENHYDRAMINE HYDROCHLORIDE. [Suspect]
     Active Substance: DIPHENHYDRAMINE HYDROCHLORIDE
     Dosage: 5 ML
  4. PROCHLORPERAZINE. [Suspect]
     Active Substance: PROCHLORPERAZINE
     Dosage: 1 DFEVERY 6 (SIX) HOURS
  5. DECADRON [Suspect]
     Active Substance: DEXAMETHASONE
     Dosage: 1 DF, BID
  6. ACETAMINOPHEN. [Suspect]
     Active Substance: ACETAMINOPHEN
     Indication: PAIN
     Dosage: 600 MG EVERY 4 (FOUR) HOURS
  7. SODIUM CHLORIDE. [Suspect]
     Active Substance: SODIUM CHLORIDE
     Dosage: ONCE. 250 ML
  8. POTASSIUM CHLORIDE. [Suspect]
     Active Substance: POTASSIUM CHLORIDE
     Dosage: 20 MEQ, QD
  9. FOLIC ACID. [Suspect]
     Active Substance: FOLIC ACID
     Dosage: 1 DF, QD
  10. IOPAMIDOL [Suspect]
     Active Substance: IOPAMIDOL
     Dosage: 125 ML ONCE.

REACTIONS (9)
  - Urinary hesitation [Unknown]
  - Abdominal pain [Unknown]
  - Pulmonary mass [Unknown]
  - Bladder cancer [Unknown]
  - Bone cancer [Unknown]
  - Pollakiuria [Unknown]
  - Lung neoplasm malignant [Unknown]
  - Pulmonary mass [Unknown]
  - Dysuria [Unknown]

NARRATIVE: CASE EVENT DATE: 20170123
